FAERS Safety Report 4520339-9 (Version None)
Quarter: 2004Q4

REPORT INFORMATION
  Report Type: 
  Country: None (occurrence: None)
  Receive Date: 20041207
  Receipt Date: 20041111
  Transmission Date: 20050328
  Serious: Yes (Hospitalization)
  Sender: FDA-Public Use
  Company Number: JP-GLAXOSMITHKLINE-B0351252A

PATIENT
  Age: 65 Year
  Sex: Female

DRUGS (10)
  1. EPIVIR [Suspect]
     Indication: HIV INFECTION
     Dosage: 150MG TWICE PER DAY
     Route: 048
     Dates: start: 20020930
  2. ZERIT [Suspect]
     Indication: HIV INFECTION
     Route: 048
     Dates: start: 20020930
  3. STOCRIN [Suspect]
     Indication: HIV INFECTION
     Route: 048
     Dates: start: 20020930
  4. GLYBURIDE [Concomitant]
     Indication: DIABETES MELLITUS
     Dates: start: 20030401, end: 20030401
  5. PREDONINE [Concomitant]
     Indication: RHEUMATOID ARTHRITIS
     Dosage: 5MG PER DAY
     Dates: start: 20030401
  6. RIMATIL [Concomitant]
     Indication: RHEUMATOID ARTHRITIS
     Route: 048
     Dates: start: 20030401
  7. EVOXAC [Concomitant]
     Indication: RHEUMATOID ARTHRITIS
     Dosage: 30MG PER DAY
     Route: 048
     Dates: start: 20030401
  8. AZULFIDINE [Concomitant]
     Indication: RHEUMATOID ARTHRITIS
     Dosage: 1TAB PER DAY
     Route: 048
     Dates: start: 20030401
  9. LANSOPRAZOLE [Concomitant]
     Indication: RHEUMATOID ARTHRITIS
     Route: 048
     Dates: start: 20030401
  10. PENTAMIDINE ISETIONATE [Concomitant]
     Indication: INFECTION PROPHYLAXIS
     Dosage: 100MG IN THE MORNING
     Route: 055
     Dates: start: 20030919, end: 20040123

REACTIONS (4)
  - CARDIOMEGALY [None]
  - DYSPNOEA [None]
  - HYPOTHYROIDISM [None]
  - PALPITATIONS [None]
